FAERS Safety Report 21258281 (Version 3)
Quarter: 2022Q3

REPORT INFORMATION
  Report Type: Report from Study
  Country: CO (occurrence: CO)
  Receive Date: 20220826
  Receipt Date: 20220926
  Transmission Date: 20221027
  Serious: Yes (Hospitalization)
  Sender: FDA-Public Use
  Company Number: CO-NOVARTISPH-NVSC2022CO191585

PATIENT
  Sex: Female

DRUGS (1)
  1. AFINITOR [Suspect]
     Active Substance: EVEROLIMUS
     Indication: Breast cancer
     Dosage: 5 MG, QD (BY MOUTH)
     Route: 048
     Dates: start: 20210208

REACTIONS (3)
  - Hip fracture [Recovering/Resolving]
  - Accident [Unknown]
  - Gingival disorder [Unknown]
